FAERS Safety Report 6338429-7 (Version None)
Quarter: 2009Q3

REPORT INFORMATION
  Report Type: 
  Country: None (occurrence: None)
  Receive Date: 20090902
  Receipt Date: 20090813
  Transmission Date: 20100115
  Serious: Yes (Life-Threatening, Hospitalization)
  Sender: FDA-Public Use
  Company Number: HR-MERCK-0804HUN00015

PATIENT
  Age: 41 Year
  Sex: Male
  Weight: 90 kg

DRUGS (9)
  1. SINGULAIR [Suspect]
     Indication: ASTHMA
     Route: 048
     Dates: start: 20060405, end: 20060527
  2. SINGULAIR [Suspect]
     Route: 048
     Dates: start: 20061015, end: 20061101
  3. BUDESONIDE AND FORMOTEROL FUMARATE [Concomitant]
     Indication: ASTHMA
     Route: 048
     Dates: start: 20041027
  4. INSULIN HUMAN, ISOPHANE [Concomitant]
     Indication: DIABETES MELLITUS
     Route: 051
     Dates: start: 19750101
  5. INSULIN HUMAN, ISOPHANE [Concomitant]
     Route: 051
     Dates: start: 19750101
  6. INSULIN ASPART [Concomitant]
     Indication: DIABETES MELLITUS
     Route: 051
     Dates: start: 19750101
  7. INSULIN ASPART [Concomitant]
     Route: 051
     Dates: start: 19750101
  8. INSULIN ASPART [Concomitant]
     Route: 051
     Dates: start: 19750101
  9. IPRATROPIUM BROMIDE [Concomitant]
     Indication: ASTHMA
     Dates: start: 19750101

REACTIONS (2)
  - ALLERGIC GRANULOMATOUS ANGIITIS [None]
  - EOSINOPHILIC MYOCARDITIS [None]
